FAERS Safety Report 5463063-0 (Version None)
Quarter: 2007Q3

REPORT INFORMATION
  Report Type: 
  Country: None (occurrence: None)
  Receive Date: 20070918
  Receipt Date: 20070918
  Transmission Date: 20080115
  Serious: Yes (Other)
  Sender: FDA-Public Use
  Company Number: None

PATIENT
  Sex: Female
  Weight: 66.6788 kg

DRUGS (18)
  1. TAXOTERE [Suspect]
     Indication: BREAST CANCER STAGE II
     Dosage: 100 MG/M2 -185MG- EVERY 3 WEEKS IV DRIP
     Route: 041
     Dates: start: 20070628, end: 20070831
  2. TAXOTERE [Suspect]
  3. FLAGYL [Concomitant]
  4. PREDNISONE [Concomitant]
  5. BACTRIM DS [Concomitant]
  6. MYCELEX [Concomitant]
  7. MYCOLOG-II [Concomitant]
  8. BUPROPION HCL [Concomitant]
  9. PROTONIX [Concomitant]
  10. DILTIAZEM CD [Concomitant]
  11. FLUOCINONIDE [Concomitant]
  12. WARFARIN SODIUM [Concomitant]
  13. FUROSEMIDE [Concomitant]
  14. NEULASTA [Concomitant]
  15. ZOFRAN ODT [Concomitant]
  16. CALTRATE D [Concomitant]
  17. POTASSIUM CHLORIDE [Concomitant]
  18. DIGITEK [Concomitant]

REACTIONS (2)
  - PARAESTHESIA [None]
  - STEVENS-JOHNSON SYNDROME [None]
